FAERS Safety Report 15968658 (Version 2)
Quarter: 2019Q1

REPORT INFORMATION
  Report Type: Report from Study
  Country: US (occurrence: US)
  Receive Date: 20190215
  Receipt Date: 20190304
  Transmission Date: 20190418
  Serious: Yes (Death)
  Sender: FDA-Public Use
  Company Number: PHEH2019US006926

PATIENT
  Sex: Male

DRUGS (1)
  1. VOTRIENT [Suspect]
     Active Substance: PAZOPANIB HYDROCHLORIDE
     Indication: CHONDROSARCOMA
     Dosage: 800 MG, DAILY
     Route: 048
     Dates: start: 20190121, end: 20190208

REACTIONS (2)
  - Product use in unapproved indication [Unknown]
  - Pulmonary embolism [Fatal]
